FAERS Safety Report 5529555-0 (Version None)
Quarter: 2007Q4

REPORT INFORMATION
  Report Type: 
  Country: None (occurrence: None)
  Receive Date: 20071129
  Receipt Date: 20071120
  Transmission Date: 20080405
  Serious: Yes (Hospitalization, Other)
  Sender: FDA-Public Use
  Company Number: US-ELI_LILLY_AND_COMPANY-US200711004857

PATIENT
  Sex: Female

DRUGS (3)
  1. HUMULIN N [Suspect]
  2. PLAVIX [Concomitant]
  3. SYNTHROID [Concomitant]

REACTIONS (11)
  - BLINDNESS UNILATERAL [None]
  - CATARACT [None]
  - DEEP VEIN THROMBOSIS [None]
  - DIZZINESS [None]
  - EYE DISORDER [None]
  - INFECTION [None]
  - LOSS OF CONSCIOUSNESS [None]
  - MEMORY IMPAIRMENT [None]
  - PAIN IN EXTREMITY [None]
  - RETINAL DISORDER [None]
  - TOE AMPUTATION [None]
